FAERS Safety Report 9633277 (Version 1)
Quarter: 2013Q4

REPORT INFORMATION
  Report Type: Spontaneous
  Country: US (occurrence: None)
  Receive Date: 20131018
  Receipt Date: 20131018
  Transmission Date: 20140711
  Serious: Yes (Life-Threatening, Hospitalization)
  Sender: FDA-Public Use
  Company Number: None

PATIENT
  Age: 65 Year
  Sex: Male
  Weight: 108.86 kg

DRUGS (1)
  1. NAPROSYN [Suspect]
     Indication: TENDONITIS
     Dosage: 1 PILL
     Route: 048
     Dates: start: 20130225, end: 20130407

REACTIONS (1)
  - Rectal haemorrhage [None]
